FAERS Safety Report 6504367-X (Version None)
Quarter: 2009Q4

REPORT INFORMATION
  Report Type: 
  Country: None (occurrence: None)
  Receive Date: 20091215
  Receipt Date: 20091015
  Transmission Date: 20100525
  Serious: Yes (Hospitalization)
  Sender: FDA-Public Use
  Company Number: 002532

PATIENT
  Age: 79 Year
  Sex: Female

DRUGS (5)
  1. GLYCERYL TRINITRATE (GLYCERYL TRINITRATE) [Suspect]
     Indication: CHEST PAIN
  2. ATORVASTATIN CALCIUM [Concomitant]
  3. CALCIUM [Concomitant]
  4. VITAMIN D [Concomitant]
  5. ALENDRONATE SODIUM [Concomitant]

REACTIONS (8)
  - BLOOD CREATINE PHOSPHOKINASE INCREASED [None]
  - CORONARY ARTERY DISEASE [None]
  - NO THERAPEUTIC RESPONSE [None]
  - OEDEMA [None]
  - STRESS CARDIOMYOPATHY [None]
  - TROPONIN I INCREASED [None]
  - VENTRICULAR HYPERTROPHY [None]
  - WHITE BLOOD CELL COUNT INCREASED [None]
